FAERS Safety Report 21075456 (Version 1)
Quarter: 2022Q3

REPORT INFORMATION
  Report Type: Spontaneous
  Country: US (occurrence: None)
  Receive Date: 20220712
  Receipt Date: 20220712
  Transmission Date: 20221027
  Serious: Yes (Hospitalization)
  Sender: FDA-Public Use
  Company Number: None

PATIENT
  Age: 34 Year
  Sex: Male
  Weight: 64 kg

DRUGS (2)
  1. LUCEMYRA [Suspect]
     Active Substance: LOFEXIDINE
  2. LUCEMYRA [Concomitant]
     Active Substance: LOFEXIDINE
     Dates: start: 20220709, end: 20220712

REACTIONS (2)
  - Dizziness [None]
  - Bradycardia [None]

NARRATIVE: CASE EVENT DATE: 20220712
